FAERS Safety Report 14980808 (Version 2)
Quarter: 2018Q2

REPORT INFORMATION
  Report Type: Report from Study
  Country: ES (occurrence: ES)
  Receive Date: 20180606
  Receipt Date: 20180621
  Transmission Date: 20180711
  Serious: Yes (Other)
  Sender: FDA-Public Use
  Company Number: ES-GILEAD-2018-0341889

PATIENT
  Age: 76 Year
  Sex: Male

DRUGS (6)
  1. PARACETAMOL [Concomitant]
     Active Substance: ACETAMINOPHEN
     Dosage: 1 G, 1 GR/8 HR
     Route: 042
     Dates: start: 20170903
  2. PANTOPRAZOL                        /01263201/ [Concomitant]
     Active Substance: PANTOPRAZOLE
     Dosage: 40 MG DIA
     Route: 042
     Dates: start: 20170903
  3. LEVOFLOXACINO [Suspect]
     Active Substance: LEVOFLOXACIN
     Indication: PRODUCT USED FOR UNKNOWN INDICATION
     Dosage: 500 MG DIA, QD (FOR 8 DAYS)
     Route: 042
     Dates: start: 20170903, end: 20170925
  4. LINEZOLID. [Suspect]
     Active Substance: LINEZOLID
     Indication: PNEUMONIA
     Dosage: 600 MG DIA, QD
     Route: 042
     Dates: start: 20170918, end: 20170925
  5. AZTREONAM LYSINE [Suspect]
     Active Substance: AZTREONAM LYSINE
     Indication: PNEUMONIA
     Dosage: UNK
     Route: 042
     Dates: start: 20170908, end: 20171010
  6. EUTIROX [Concomitant]
     Active Substance: LEVOTHYROXINE SODIUM
     Dosage: 25 UG, 1  CP DIA
     Route: 048
     Dates: start: 20010101

REACTIONS (1)
  - Hepatitis cholestatic [Recovered/Resolved]

NARRATIVE: CASE EVENT DATE: 20170928
